FAERS Safety Report 16541359 (Version 1)
Quarter: 2019Q3

REPORT INFORMATION
  Report Type: Report from Study
  Country: ES (occurrence: ES)
  Receive Date: 20190708
  Receipt Date: 20190708
  Transmission Date: 20191004
  Serious: Yes (Death, Other)
  Sender: FDA-Public Use
  Company Number: ES-PFIZER INC-2019286294

PATIENT

DRUGS (2)
  1. CARBOPLATIN. [Suspect]
     Active Substance: CARBOPLATIN
     Indication: SQUAMOUS CELL CARCINOMA OF HEAD AND NECK
     Dosage: UNK , WEEKLY (AUC 0.5 I.V.)
     Route: 042
  2. TEGAFUR URACIL [Suspect]
     Active Substance: TEGAFUR
     Indication: SQUAMOUS CELL CARCINOMA OF HEAD AND NECK
     Dosage: 100 MG/M2, DAILY
     Route: 048

REACTIONS (4)
  - Mucosal inflammation [Unknown]
  - Neutropenia [Unknown]
  - Pneumonia [Fatal]
  - Pyrexia [Unknown]
